FAERS Safety Report 5780698-6 (Version None)
Quarter: 2008Q2

REPORT INFORMATION
  Report Type: 
  Country: None (occurrence: None)
  Receive Date: 20080620
  Receipt Date: 20080616
  Transmission Date: 20081010
  Serious: Yes (Other)
  Sender: FDA-Public Use
  Company Number: JP-PFIZER INC-2008050887

PATIENT
  Age: 75 Year
  Sex: Male

DRUGS (1)
  1. XALATAN [Suspect]
     Route: 047

REACTIONS (2)
  - ASTHENOPIA [None]
  - VISUAL FIELD DEFECT [None]
